FAERS Safety Report 6433481-2 (Version None)
Quarter: 2009Q4

REPORT INFORMATION
  Report Type: 
  Country: None (occurrence: None)
  Receive Date: 20091106
  Receipt Date: 20091106
  Transmission Date: 20100525
  Serious: Yes (Life-Threatening, Hospitalization)
  Sender: FDA-Public Use
  Company Number: None

PATIENT
  Age: 28 Year
  Sex: Male
  Weight: 67.586 kg

DRUGS (1)
  1. CLONIDINE [Suspect]
     Indication: DRUG WITHDRAWAL SYNDROME
     Dosage: 1 DOSE .1 MG 1 TIME PO
     Route: 048
     Dates: start: 20091104, end: 20091104

REACTIONS (6)
  - ANXIETY [None]
  - DRY MOUTH [None]
  - HOMICIDAL IDEATION [None]
  - SUICIDAL IDEATION [None]
  - THIRST [None]
  - TREMOR [None]
